FAERS Safety Report 8076420-3 (Version None)
Quarter: 2012Q1

REPORT INFORMATION
  Report Type: 
  Country: None (occurrence: None)
  Receive Date: 20120127
  Receipt Date: 20120126
  Transmission Date: 20120608
  Serious: No
  Sender: FDA-Public Use
  Company Number: US-BAYER-2012-008711

PATIENT
  Sex: Female

DRUGS (5)
  1. NIASPAN [Concomitant]
     Dosage: 500 MG
  2. GABAPENTIN [Concomitant]
     Dosage: 100 MG
  3. TRAZODONE HCL [Concomitant]
     Dosage: 150 MG
  4. BETASERON [Suspect]
     Dosage: 0.25 MG, QOD
     Route: 058
  5. SIMVASTATIN [Concomitant]
     Dosage: 20 MG

REACTIONS (1)
  - INJECTION SITE ERYTHEMA [None]
